FAERS Safety Report 8027973-2 (Version None)
Quarter: 2012Q1

REPORT INFORMATION
  Report Type: 
  Country: None (occurrence: None)
  Receive Date: 20120106
  Receipt Date: 20111228
  Transmission Date: 20120608
  Serious: Yes (Other)
  Sender: FDA-Public Use
  Company Number: JP-ELI_LILLY_AND_COMPANY-JP201101001201

PATIENT
  Age: 82 Year
  Sex: Male

DRUGS (1)
  1. FORTEO [Suspect]
     Dosage: UNK
     Route: 058
     Dates: start: 20101201

REACTIONS (3)
  - OEDEMA PERIPHERAL [None]
  - HEART RATE INCREASED [None]
  - BLADDER CANCER [None]
